FAERS Safety Report 15268598 (Version 2)
Quarter: 2018Q3

REPORT INFORMATION
  Report Type: Spontaneous
  Country: FR (occurrence: FR)
  Receive Date: 20180812
  Receipt Date: 20180812
  Transmission Date: 20181010
  Serious: Yes (Hospitalization)
  Sender: FDA-Public Use
  Company Number: PHHY2018FR068269

PATIENT
  Age: 49 Year
  Sex: Female

DRUGS (2)
  1. NEORAL [Suspect]
     Active Substance: CYCLOSPORINE
     Indication: DERMATITIS ATOPIC
     Dosage: 5 MG/KG, UNK
     Route: 048
     Dates: start: 201706, end: 201712
  2. METHOTREXATE. [Suspect]
     Active Substance: METHOTREXATE
     Indication: DERMATITIS ATOPIC
     Dosage: 15 MG, UNK
     Route: 048
     Dates: start: 201712, end: 201802

REACTIONS (1)
  - Cutaneous lymphoma [Recovering/Resolving]

NARRATIVE: CASE EVENT DATE: 20180501
